FAERS Safety Report 9480973 (Version 1)
Quarter: 2013Q3

REPORT INFORMATION
  Report Type: Spontaneous
  Country: US (occurrence: US)
  Receive Date: 20130828
  Receipt Date: 20130828
  Transmission Date: 20140515
  Serious: Yes (Other)
  Sender: FDA-Public Use
  Company Number: US-AMGEN-KDL144075

PATIENT
  Age: 17 Year
  Sex: Female

DRUGS (1)
  1. ENBREL [Suspect]
     Indication: PSORIASIS
     Dosage: 50 MG, 2 TIMES/WK
     Route: 058
     Dates: start: 20040728

REACTIONS (5)
  - Infectious mononucleosis [Recovered/Resolved]
  - Psoriasis [Unknown]
  - Condition aggravated [Unknown]
  - Influenza [Recovered/Resolved]
  - Injection site pain [Unknown]
